FAERS Safety Report 6243564-8 (Version None)
Quarter: 2009Q2

REPORT INFORMATION
  Report Type: 
  Country: None (occurrence: None)
  Receive Date: 20090624
  Receipt Date: 20090622
  Transmission Date: 20091009
  Serious: Yes (Other)
  Sender: FDA-Public Use
  Company Number: FR-JNJFOC-20081206772

PATIENT
  Sex: Female
  Weight: 1.1 kg

DRUGS (19)
  1. TAVANIC [Suspect]
     Indication: DRUG EXPOSURE DURING PREGNANCY
     Route: 064
  2. IMODIUM [Suspect]
     Indication: DRUG EXPOSURE DURING PREGNANCY
     Route: 064
  3. PLITICAN [Suspect]
     Indication: DRUG EXPOSURE DURING PREGNANCY
     Route: 064
  4. PRIMPERAN [Suspect]
     Route: 064
  5. PRIMPERAN [Suspect]
     Indication: DRUG EXPOSURE DURING PREGNANCY
     Route: 064
  6. ARACYTINE [Suspect]
     Indication: DRUG EXPOSURE DURING PREGNANCY
     Route: 064
  7. TAZOCILLINE [Suspect]
     Indication: DRUG EXPOSURE DURING PREGNANCY
     Route: 064
  8. VANCOMYCIN MERCK [Suspect]
     Indication: DRUG EXPOSURE DURING PREGNANCY
     Route: 064
  9. SPASEON [Suspect]
     Indication: DRUG EXPOSURE DURING PREGNANCY
     Route: 064
  10. DEBRIDAT [Suspect]
     Indication: DRUG EXPOSURE DURING PREGNANCY
     Route: 064
  11. CONTRAMAL [Suspect]
     Indication: DRUG EXPOSURE DURING PREGNANCY
     Route: 064
  12. ACETAMINOPHEN [Suspect]
     Indication: DRUG EXPOSURE DURING PREGNANCY
     Route: 064
  13. ECONAZOLE SANDOZ [Suspect]
     Indication: DRUG EXPOSURE DURING PREGNANCY
     Route: 064
  14. ACUPAN [Suspect]
     Indication: DRUG EXPOSURE DURING PREGNANCY
     Route: 064
  15. ALUMINUM HYDROXIDE AND MAGNESIUM TRISILICATE [Suspect]
     Indication: DRUG EXPOSURE DURING PREGNANCY
     Route: 064
  16. AMIKACINE MERCK [Suspect]
     Indication: DRUG EXPOSURE DURING PREGNANCY
     Route: 064
  17. ATARAX [Suspect]
     Indication: DRUG EXPOSURE DURING PREGNANCY
     Route: 064
  18. CERUBIDINE [Suspect]
     Indication: DRUG EXPOSURE DURING PREGNANCY
     Route: 064
  19. TARGOCID [Suspect]
     Indication: DRUG EXPOSURE DURING PREGNANCY
     Route: 064

REACTIONS (6)
  - ANAEMIA [None]
  - FOETAL GROWTH RETARDATION [None]
  - FOETAL HEART RATE DISORDER [None]
  - PERIVENTRICULAR LEUKOMALACIA [None]
  - PREMATURE BABY [None]
  - STAPHYLOCOCCAL INFECTION [None]
